FAERS Safety Report 10236452 (Version 2)
Quarter: 2014Q2

REPORT INFORMATION
  Report Type: Report from Study
  Country: CA (occurrence: CA)
  Receive Date: 20140613
  Receipt Date: 20140613
  Transmission Date: 20141212
  Serious: Yes (Hospitalization)
  Sender: FDA-Public Use
  Company Number: CA-BRISTOL-MYERS SQUIBB COMPANY-19609643

PATIENT
  Age: 76 Year
  Sex: Female

DRUGS (6)
  1. ORENCIA [Suspect]
     Indication: RHEUMATOID ARTHRITIS
     Dosage: 1DF=500 UNIT NOS
     Route: 042
     Dates: start: 20130628
  2. MORPHINE [Concomitant]
  3. ACTONEL [Concomitant]
  4. VITAMIN D [Concomitant]
  5. FOLIC ACID [Concomitant]
  6. IRON [Concomitant]

REACTIONS (2)
  - Arthropathy [Unknown]
  - Drug ineffective [Unknown]
